FAERS Safety Report 15584985 (Version 2)
Quarter: 2019Q3

REPORT INFORMATION
  Report Type: Spontaneous
  Country: US (occurrence: US)
  Receive Date: 20181102
  Receipt Date: 20190930
  Transmission Date: 20191004
  Serious: Yes (Hospitalization, Other)
  Sender: FDA-Public Use
  Company Number: US-BIOMARINAP-US-2018-120616

PATIENT

DRUGS (1)
  1. ALDURAZYME [Suspect]
     Active Substance: LARONIDASE
     Indication: MUCOPOLYSACCHARIDOSIS I
     Dosage: UNK
     Route: 041
     Dates: start: 20170908, end: 20180618

REACTIONS (10)
  - Vascular device infection [Recovered/Resolved]
  - Bone marrow transplant [Unknown]
  - Sleep apnoea syndrome [Not Recovered/Not Resolved]
  - Laryngomalacia [Not Recovered/Not Resolved]
  - Condition aggravated [Unknown]
  - Behaviour disorder [Not Recovered/Not Resolved]
  - Pyrexia [Recovered/Resolved]
  - Ear infection [Not Recovered/Not Resolved]
  - Communication disorder [Not Recovered/Not Resolved]
  - Eczema [Not Recovered/Not Resolved]

NARRATIVE: CASE EVENT DATE: 20180604
